FAERS Safety Report 14391771 (Version 1)
Quarter: 2018Q1

REPORT INFORMATION
  Report Type: Spontaneous
  Country: DE (occurrence: DE)
  Receive Date: 20180116
  Receipt Date: 20180116
  Transmission Date: 20180509
  Serious: Yes (Other)
  Sender: FDA-Public Use
  Company Number: DE-JNJFOC-20171108404

PATIENT

DRUGS (1)
  1. USTEKINUMAB [Suspect]
     Active Substance: USTEKINUMAB
     Indication: PSORIASIS
     Dosage: 90 MG OR 45 MG AT WEEK 0 , 4, 16, 28 AND 40
     Route: 058

REACTIONS (11)
  - Infection [Unknown]
  - Influenza [Unknown]
  - Nasopharyngitis [Unknown]
  - Hypertension [Unknown]
  - Headache [Unknown]
  - Bronchitis [Unknown]
  - Back pain [Unknown]
  - Rhinitis [Unknown]
  - Injection site reaction [Unknown]
  - Arthralgia [Unknown]
  - Adverse event [Unknown]
